FAERS Safety Report 8061988-3 (Version None)
Quarter: 2012Q1

REPORT INFORMATION
  Report Type: 
  Country: None (occurrence: None)
  Receive Date: 20120117
  Receipt Date: 20120104
  Transmission Date: 20120608
  Serious: Yes (Death)
  Sender: FDA-Public Use
  Company Number: UTC-014280

PATIENT
  Age: 74 Year
  Sex: Male
  Weight: 82.7 kg

DRUGS (6)
  1. DIURETICS (DIURETICS) [Concomitant]
  2. LETARIRIS (AMBRISENTAN) [Concomitant]
  3. TRACLEER [Concomitant]
  4. COUMADIN [Concomitant]
  5. REVATIO [Concomitant]
  6. TYVASO [Suspect]
     Indication: PULMONARY ARTERIAL HYPERTENSION
     Dosage: 288 MCG (72 MCG, 4 IN 1 D), INHALATION
     Route: 055
     Dates: start: 20100524

REACTIONS (1)
  - DEATH [None]
